FAERS Safety Report 9946976 (Version 1)
Quarter: 2014Q1

REPORT INFORMATION
  Report Type: Report from Study
  Country: US (occurrence: US)
  Receive Date: 20140303
  Receipt Date: 20140303
  Transmission Date: 20141002
  Serious: No
  Sender: FDA-Public Use
  Company Number: US-ABBVIE-13P-163-1058567-00

PATIENT
  Age: 56 Year
  Sex: Male
  Weight: 77.18 kg

DRUGS (1)
  1. HUMIRA [Suspect]
     Indication: RHEUMATOID ARTHRITIS
     Dates: start: 2012, end: 201208

REACTIONS (4)
  - Skin discolouration [Not Recovered/Not Resolved]
  - Psoriasis [Recovered/Resolved]
  - Psoriasis [Recovered/Resolved]
  - Psoriasis [Recovered/Resolved]
